FAERS Safety Report 4498000-9 (Version None)
Quarter: 2004Q4

REPORT INFORMATION
  Report Type: 
  Country: None (occurrence: None)
  Receive Date: 20041110
  Receipt Date: 20041101
  Transmission Date: 20050328
  Serious: Yes (Other)
  Sender: FDA-Public Use
  Company Number: PHEH2004US11738

PATIENT
  Age: 41 Year
  Sex: Female

DRUGS (4)
  1. TEGRETOL [Suspect]
     Indication: CONVULSION
     Route: 048
     Dates: end: 20040701
  2. KEPPRA [Concomitant]
     Indication: CONVULSION
  3. PREGABALIN [Concomitant]
     Indication: CONVULSION
  4. ZONEGRAN [Concomitant]
     Indication: CONVULSION
     Dates: start: 20040701

REACTIONS (3)
  - CONVULSION [None]
  - OOPHORECTOMY [None]
  - WEIGHT DECREASED [None]
